FAERS Safety Report 7432803-3 (Version None)
Quarter: 2011Q2

REPORT INFORMATION
  Report Type: 
  Country: None (occurrence: None)
  Receive Date: 20110422
  Receipt Date: 20110419
  Transmission Date: 20111010
  Serious: Yes (Hospitalization)
  Sender: FDA-Public Use
  Company Number: FR-ROCHE-772386

PATIENT
  Sex: Female

DRUGS (7)
  1. TEGRETOL [Suspect]
     Indication: FACIAL PAIN
     Route: 048
     Dates: start: 20090716, end: 20090716
  2. NOOTROPYL [Concomitant]
     Route: 048
  3. MOVIPREP [Concomitant]
     Route: 048
  4. OLMETEC [Concomitant]
     Route: 048
  5. TENSTATEN [Concomitant]
     Route: 048
  6. RIVOTRIL [Suspect]
     Dosage: DOSE: 7 DROPS, FREQUENCY: DAILY, STRENGTH: 2.5 MG/ML
     Route: 048
     Dates: start: 20090716, end: 20090716
  7. KARDEGIC [Concomitant]
     Route: 048

REACTIONS (3)
  - LOSS OF CONSCIOUSNESS [None]
  - FALL [None]
  - RHABDOMYOLYSIS [None]
